FAERS Safety Report 23469623 (Version 1)
Quarter: 2024Q1

REPORT INFORMATION
  Report Type: Spontaneous
  Country: GB (occurrence: GB)
  Receive Date: 20240202
  Receipt Date: 20240202
  Transmission Date: 20240410
  Serious: Yes (Other)
  Sender: FDA-Public Use
  Company Number: GB-ADVANZ PHARMA-202401000628

PATIENT

DRUGS (4)
  1. ZONEGRAN [Suspect]
     Active Substance: ZONISAMIDE
     Indication: Epilepsy
     Dosage: HARD CAPSULES MORE THAN 10 YEARS
  2. ZONEGRAN [Suspect]
     Active Substance: ZONISAMIDE
     Indication: Seizure
  3. ZONEGRAN [Suspect]
     Active Substance: ZONISAMIDE
     Indication: Epilepsy
     Dosage: HARD CAPSULES MORE THAN 10 YEARS
  4. ZONEGRAN [Suspect]
     Active Substance: ZONISAMIDE
     Indication: Seizure

REACTIONS (8)
  - Sepsis [Not Recovered/Not Resolved]
  - Thrombosis [Not Recovered/Not Resolved]
  - Nephrolithiasis [Not Recovered/Not Resolved]
  - Seizure [Not Recovered/Not Resolved]
  - Ankle fracture [Not Recovered/Not Resolved]
  - Lithiasis [Not Recovered/Not Resolved]
  - COVID-19 [Not Recovered/Not Resolved]
  - Weight decreased [Not Recovered/Not Resolved]

NARRATIVE: CASE EVENT DATE: 20221101
